FAERS Safety Report 5278666-6 (Version None)
Quarter: 2007Q1

REPORT INFORMATION
  Report Type: 
  Country: None (occurrence: None)
  Receive Date: 20061213
  Receipt Date: 20051201
  Transmission Date: 20070707
  Serious: No
  Sender: FDA-Public Use
  Company Number: 2006UW00748

PATIENT
  Sex: Male

DRUGS (3)
  1. SEROQUEL [Suspect]
     Dosage: 200 MG BID
  2. SEROQUEL [Suspect]
     Dosage: 300 MG BID
     Dates: end: 20050921
  3. SEROQUEL [Suspect]
     Dosage: 450 MG DAILY
     Dates: start: 20050922

REACTIONS (2)
  - MUSCLE RIGIDITY [None]
  - MUSCLE SPASMS [None]
